FAERS Safety Report 7591995-6 (Version None)
Quarter: 2011Q2

REPORT INFORMATION
  Report Type: 
  Country: None (occurrence: None)
  Receive Date: 20110606
  Receipt Date: 20100925
  Transmission Date: 20111010
  Serious: Yes (Disabling, Other)
  Sender: FDA-Public Use
  Company Number: US-SEPTODONT-201000187

PATIENT
  Sex: Female
  Weight: 60.2 kg

DRUGS (1)
  1. SEPTOCAINE [Suspect]
     Indication: LOCAL ANAESTHESIA
     Dosage: DENTAL
     Route: 004
     Dates: start: 20091228

REACTIONS (3)
  - PAIN [None]
  - BURNING SENSATION [None]
  - HYPOAESTHESIA [None]
